FAERS Safety Report 4471648-3 (Version None)
Quarter: 2004Q4

REPORT INFORMATION
  Report Type: 
  Country: None (occurrence: None)
  Receive Date: 20041012
  Receipt Date: 20040915
  Transmission Date: 20050328
  Serious: Yes (Other)
  Sender: FDA-Public Use
  Company Number: 200413036JP

PATIENT
  Age: 45 Year
  Sex: Female
  Weight: 50 kg

DRUGS (8)
  1. KETEK [Suspect]
     Indication: NASOPHARYNGITIS
     Route: 048
     Dates: start: 20040821, end: 20040823
  2. KETEK [Suspect]
     Indication: UPPER RESPIRATORY TRACT INFLAMMATION
     Route: 048
     Dates: start: 20040821, end: 20040823
  3. UNIPHYL [Concomitant]
     Route: 048
  4. EBASTEL [Concomitant]
     Route: 048
  5. HOKUNALIN [Concomitant]
     Route: 003
  6. PULMICORT [Concomitant]
     Route: 055
  7. PL GRAN. [Concomitant]
     Route: 048
     Dates: start: 20040821
  8. TRANSAMIN [Concomitant]
     Route: 048
     Dates: start: 20040821

REACTIONS (1)
  - DEAFNESS UNILATERAL [None]
